FAERS Safety Report 5123503-3 (Version None)
Quarter: 2006Q4

REPORT INFORMATION
  Report Type: 
  Country: None (occurrence: None)
  Receive Date: 20061009
  Receipt Date: 20060928
  Transmission Date: 20070319
  Serious: Yes (Other)
  Sender: FDA-Public Use
  Company Number: PHEH2006US12325

PATIENT
  Age: 77 Year
  Sex: Female

DRUGS (2)
  1. ZOMETA [Suspect]
     Indication: RESORPTION BONE INCREASED
     Dosage: 4 ML EVERY 3 MONTHS
     Dates: start: 20050530, end: 20060524
  2. ATENOLOL [Concomitant]

REACTIONS (1)
  - OSTEONECROSIS [None]
